FAERS Safety Report 7880685-8 (Version None)
Quarter: 2011Q4

REPORT INFORMATION
  Report Type: 
  Country: None (occurrence: None)
  Receive Date: 20111101
  Receipt Date: 20111028
  Transmission Date: 20120403
  Serious: Yes (Other)
  Sender: FDA-Public Use
  Company Number: US-PFIZER INC-2011264602

PATIENT
  Sex: Male
  Weight: 68.027 kg

DRUGS (3)
  1. PREPARATION H MAXIMUM STRENGTH [Suspect]
     Indication: HAEMORRHOIDS
     Dosage: UNK, AS NEEDED
     Dates: start: 20111026, end: 20111028
  2. TOPROL-XL [Concomitant]
     Indication: ARRHYTHMIA
     Dosage: UNK
  3. UROXATRAL [Concomitant]
     Indication: PROSTATIC DISORDER
     Dosage: 10 MG, UNK

REACTIONS (1)
  - HAEMATOCHEZIA [None]
